FAERS Safety Report 11724934 (Version 1)
Quarter: 2015Q4

REPORT INFORMATION
  Report Type: Spontaneous
  Country: US (occurrence: US)
  Receive Date: 20151111
  Receipt Date: 20151111
  Transmission Date: 20160304
  Serious: No
  Sender: FDA-Public Use
  Company Number: US-UCBSA-2015014357

PATIENT
  Age: 61 Year
  Sex: Female

DRUGS (1)
  1. VIMPAT [Suspect]
     Active Substance: LACOSAMIDE
     Indication: EPILEPSY
     Dosage: 200 MG/ 2 A DAY
     Dates: start: 20090811

REACTIONS (6)
  - Neck pain [Not Recovered/Not Resolved]
  - Joint injury [Recovered/Resolved]
  - Pain [Not Recovered/Not Resolved]
  - Head injury [Not Recovered/Not Resolved]
  - Headache [Not Recovered/Not Resolved]
  - Seizure [Unknown]

NARRATIVE: CASE EVENT DATE: 201504
